FAERS Safety Report 25578198 (Version 1)
Quarter: 2025Q3

REPORT INFORMATION
  Report Type: Spontaneous
  Country: US (occurrence: US)
  Receive Date: 20250718
  Receipt Date: 20250718
  Transmission Date: 20251021
  Serious: Yes (Hospitalization)
  Sender: SANOFI AVENTIS
  Company Number: US-SA-2025SA202490

PATIENT
  Age: 72 Year
  Sex: Female
  Weight: 64.41 kg

DRUGS (1)
  1. REZUROCK [Suspect]
     Active Substance: BELUMOSUDIL
     Indication: Graft versus host disease
     Dosage: 200 MG, QD
     Route: 048
     Dates: start: 20230808

REACTIONS (3)
  - Blood pressure abnormal [Unknown]
  - Haematological infection [Unknown]
  - Neutrophil count decreased [Unknown]
